FAERS Safety Report 22055575 (Version 1)
Quarter: 2023Q1

REPORT INFORMATION
  Report Type: Spontaneous
  Country: US (occurrence: None)
  Receive Date: 20230302
  Receipt Date: 20230302
  Transmission Date: 20230418
  Serious: No
  Sender: FDA-Public Use
  Company Number: None

PATIENT
  Age: 76 Year
  Sex: Female
  Weight: 69.4 kg

DRUGS (15)
  1. CAPECITABINE [Suspect]
     Active Substance: CAPECITABINE
     Indication: Rectal cancer
     Dosage: 1500MG TWICE DAILY ORAL
     Route: 048
  2. CAPECITABINE [Suspect]
     Active Substance: CAPECITABINE
     Indication: Anal cancer
  3. CAPECITABINE [Suspect]
     Active Substance: CAPECITABINE
     Indication: Anal cancer
  4. ACETAMINOPHEN [Concomitant]
     Active Substance: ACETAMINOPHEN
  5. B COMPLEX [Concomitant]
  6. COENZYME Q10 [Concomitant]
     Active Substance: DIETARY SUPPLEMENT\UBIDECARENONE
  7. DIGOXIN [Concomitant]
  8. DILTIAZEM [Concomitant]
  9. ELIQUIS [Concomitant]
  10. NORCO [Concomitant]
  11. LISINOPRIL [Concomitant]
  12. TYLENOL [Concomitant]
  13. UBIQUINOL-PYRROLOQUIN QUINONE [Concomitant]
  14. VITAMIN B COMPLEX [Concomitant]
  15. VITAMIN D [Concomitant]

REACTIONS (1)
  - Rehabilitation therapy [None]
